FAERS Safety Report 4583159-5 (Version None)
Quarter: 2005Q1

REPORT INFORMATION
  Report Type: 
  Country: None (occurrence: None)
  Receive Date: 20050215
  Receipt Date: 20050207
  Transmission Date: 20050727
  Serious: Yes (Other)
  Sender: FDA-Public Use
  Company Number: US-ABBOTT-05P-163-0289706-00

PATIENT
  Age: 4 Year
  Sex: Female
  Weight: 18.16 kg

DRUGS (5)
  1. MIVACRON [Suspect]
     Indication: ANAESTHESIA
     Dosage: NOT REPORTED
     Dates: start: 20041201, end: 20041201
  2. MIDAZOLAM HYDROCHLORIDE [Concomitant]
     Indication: PREMEDICATION
     Route: 048
     Dates: start: 20041201, end: 20041201
  3. SUXAMETHONIUM CHLORIDE [Concomitant]
     Indication: ANAESTHESIA
     Dosage: NOT REPORTED
     Dates: start: 20041201, end: 20041201
  4. FENTANYL [Concomitant]
     Indication: ANAESTHESIA
     Dosage: NOT REPORTED, NOT REPORTED
     Route: 042
     Dates: start: 20041201, end: 20041201
  5. CEFAZOLIN SODIUM [Concomitant]
     Indication: DRUG USE FOR UNKNOWN INDICATION
     Route: 042
     Dates: start: 20041201, end: 20041201

REACTIONS (2)
  - DRUG EFFECT PROLONGED [None]
  - RESPIRATORY ARREST [None]
